FAERS Safety Report 6547005-2 (Version None)
Quarter: 2010Q1

REPORT INFORMATION
  Report Type: 
  Country: None (occurrence: None)
  Receive Date: 20100122
  Receipt Date: 20100114
  Transmission Date: 20100710
  Serious: Yes (Hospitalization)
  Sender: FDA-Public Use
  Company Number: B0625866A

PATIENT
  Age: 40 Year
  Sex: Female

DRUGS (15)
  1. PAROXETINE HYDROCHLORIDE [Suspect]
     Indication: DEPRESSION
     Dates: start: 19980901
  2. SEROXAT [Suspect]
     Indication: DEPRESSION
     Dates: start: 20020101
  3. SEROXAT [Suspect]
     Dates: start: 20040101
  4. SEROXAT [Suspect]
  5. RISPERIDONE [Concomitant]
     Dates: start: 20021201
  6. ZOPICLONE [Concomitant]
  7. DEPIXOL [Concomitant]
     Indication: DEPRESSION
     Dosage: 40MG TWO TIMES PER WEEK
     Dates: start: 20030301
  8. PARACETAMOL [Concomitant]
  9. OLANZAPINE [Concomitant]
  10. CLOPIXOL [Concomitant]
  11. LITHIUM [Concomitant]
  12. QUETIAPINE [Concomitant]
  13. EPILIM [Concomitant]
  14. SULPIRIDE [Concomitant]
  15. DEPAKOTE [Concomitant]
     Dosage: 750MG PER DAY
     Dates: start: 20030301

REACTIONS (5)
  - BIPOLAR DISORDER [None]
  - CONDITION AGGRAVATED [None]
  - OVERDOSE [None]
  - SUICIDAL IDEATION [None]
  - SUICIDE ATTEMPT [None]
